FAERS Safety Report 6067830-4 (Version None)
Quarter: 2009Q1

REPORT INFORMATION
  Report Type: 
  Country: None (occurrence: None)
  Receive Date: 20090205
  Receipt Date: 20090121
  Transmission Date: 20090719
  Serious: Yes (Other)
  Sender: FDA-Public Use
  Company Number: PHHY2009DE04018

PATIENT
  Age: 55 Year
  Sex: Male

DRUGS (4)
  1. MYFORTIC [Suspect]
     Indication: UVEITIS
     Dosage: 360 MG, BID
     Dates: start: 20070516
  2. MYFORTIC [Suspect]
     Dosage: 720 MG, BID
     Dates: start: 20070501
  3. MYFORTIC [Suspect]
     Dosage: 720 MG, BID
  4. DIAMOX [Concomitant]
     Indication: UVEITIS
     Dosage: UNK
     Dates: start: 20071001

REACTIONS (2)
  - CONDITION AGGRAVATED [None]
  - MACULAR OEDEMA [None]
